FAERS Safety Report 18205703 (Version 1)
Quarter: 2020Q3

REPORT INFORMATION
  Report Type: Spontaneous
  Country: CA (occurrence: CA)
  Receive Date: 20200827
  Receipt Date: 20200827
  Transmission Date: 20201103
  Serious: Yes (Death)
  Sender: FDA-Public Use
  Company Number: CA-GE HEALTHCARE LIFE SCIENCES-2020CSU003877

PATIENT

DRUGS (5)
  1. VISIPAQUE [Suspect]
     Active Substance: IODIXANOL
     Indication: COMPUTERISED TOMOGRAM PELVIS
  2. VISIPAQUE [Suspect]
     Active Substance: IODIXANOL
     Indication: COMPUTERISED TOMOGRAM ABDOMEN
     Dosage: 100 ML IN RIGHT WRIST, SINGLE
     Route: 042
     Dates: start: 20200824, end: 20200824
  3. VISIPAQUE [Suspect]
     Active Substance: IODIXANOL
     Indication: PYREXIA
  4. VISIPAQUE [Suspect]
     Active Substance: IODIXANOL
     Indication: ABDOMINAL WALL ABSCESS
  5. VISIPAQUE [Suspect]
     Active Substance: IODIXANOL
     Indication: NAUSEA

REACTIONS (1)
  - Death [Fatal]

NARRATIVE: CASE EVENT DATE: 20200824
